FAERS Safety Report 21856708 (Version 5)
Quarter: 2023Q1

REPORT INFORMATION
  Report Type: Spontaneous
  Country: ES (occurrence: ES)
  Receive Date: 20230113
  Receipt Date: 20230301
  Transmission Date: 20230418
  Serious: Yes (Death, Other)
  Sender: FDA-Public Use
  Company Number: ES-JNJFOC-20221246820

PATIENT
  Age: 72 Year
  Sex: Male

DRUGS (1)
  1. IMBRUVICA [Suspect]
     Active Substance: IBRUTINIB
     Indication: Central nervous system lymphoma
     Dosage: PROVIDE THE REASON WHY LOT NUMBER IS UNKNOWN :: OTHER  SPECIFY OTHER :: INFORMATION NOT PROVIDED  PR
     Route: 048

REACTIONS (9)
  - Asphyxia [Fatal]
  - Asthenia [Unknown]
  - Mucosal disorder [Unknown]
  - Arrhythmia [Fatal]
  - Off label use [Unknown]
  - Product quality issue [Unknown]
  - Generalised oedema [Fatal]
  - Skin discolouration [Unknown]
  - Infection [Unknown]
